FAERS Safety Report 9639065 (Version 1)
Quarter: 2013Q4

REPORT INFORMATION
  Report Type: Spontaneous
  Country: US (occurrence: US)
  Receive Date: 20131022
  Receipt Date: 20131022
  Transmission Date: 20140711
  Serious: No
  Sender: FDA-Public Use
  Company Number: US-MYLANLABS-2012S1026485

PATIENT
  Sex: Female

DRUGS (1)
  1. METFORMIN HCL EXTENDED-RELEASE TABLETS [Suspect]
     Route: 048

REACTIONS (1)
  - Alopecia [Not Recovered/Not Resolved]
